FAERS Safety Report 8321485-4 (Version None)
Quarter: 2012Q2

REPORT INFORMATION
  Report Type: 
  Country: None (occurrence: None)
  Receive Date: 20120430
  Receipt Date: 20120430
  Transmission Date: 20120825
  Serious: Yes (Hospitalization)
  Sender: FDA-Public Use
  Company Number: None

PATIENT
  Age: 34 Year
  Sex: Female
  Weight: 81.646 kg

DRUGS (1)
  1. XENICAL [Suspect]
     Indication: OBESITY
     Dosage: 120 MG
     Route: 048
     Dates: start: 20050401, end: 20060401

REACTIONS (3)
  - SALIVARY HYPERSECRETION [None]
  - NAUSEA [None]
  - VOMITING [None]
